FAERS Safety Report 16126799 (Version 1)
Quarter: 2019Q1

REPORT INFORMATION
  Report Type: Spontaneous
  Country: FR (occurrence: FR)
  Receive Date: 20190328
  Receipt Date: 20190328
  Transmission Date: 20190418
  Serious: Yes (Hospitalization)
  Sender: FDA-Public Use
  Company Number: FR-ACCORD-115947

PATIENT
  Age: 83 Year
  Sex: Male
  Weight: 62.3 kg

DRUGS (12)
  1. ESCITALOPRAM [Suspect]
     Active Substance: ESCITALOPRAM OXALATE
     Indication: DEPRESSION
     Route: 048
     Dates: start: 20180405, end: 20181120
  2. IMOVANE [Suspect]
     Active Substance: ZOPICLONE
     Indication: INSOMNIA
     Route: 048
     Dates: start: 2014, end: 20181120
  3. LASILIX [Suspect]
     Active Substance: FUROSEMIDE
     Indication: HYPERTENSION
     Route: 048
     Dates: start: 2017, end: 20181120
  4. AVODART [Concomitant]
     Active Substance: DUTASTERIDE
  5. LOVENOX [Concomitant]
     Active Substance: ENOXAPARIN SODIUM
  6. OMEXEL L.P. [Suspect]
     Active Substance: TAMSULOSIN HYDROCHLORIDE
     Indication: BENIGN PROSTATIC HYPERPLASIA
     Route: 048
     Dates: start: 2014, end: 20181120
  7. SEEBRI BREEZHALER [Concomitant]
     Active Substance: GLYCOPYRROLATE
  8. KARDEGIC [Concomitant]
     Active Substance: ASPIRIN DL-LYSINE
  9. TENORDATE [Suspect]
     Active Substance: ATENOLOL\NIFEDIPINE
     Indication: HYPERTENSION
     Route: 048
     Dates: start: 2014
  10. SPIRONOLACTONE. [Suspect]
     Active Substance: SPIRONOLACTONE
     Indication: HYPERTENSION
     Route: 048
     Dates: start: 2017
  11. SERESTA [Suspect]
     Active Substance: OXAZEPAM
     Indication: ANXIETY
     Route: 048
     Dates: start: 20180405
  12. CANDESARTAN. [Suspect]
     Active Substance: CANDESARTAN
     Indication: HYPERTENSION
     Route: 048

REACTIONS (1)
  - Fall [Unknown]

NARRATIVE: CASE EVENT DATE: 2018
